FAERS Safety Report 6884787-4 (Version None)
Quarter: 2010Q3

REPORT INFORMATION
  Report Type: 
  Country: None (occurrence: None)
  Receive Date: 20100729
  Receipt Date: 20100719
  Transmission Date: 20110219
  Serious: Yes (Hospitalization)
  Sender: FDA-Public Use
  Company Number: KR-ABBOTT-10P-090-0658211-00

PATIENT
  Age: 55 Year
  Sex: Male
  Weight: 64 kg

DRUGS (10)
  1. KALETRA [Suspect]
     Indication: PRODUCT USED FOR UNKNOWN INDICATION
     Dates: start: 20091102
  2. 3TC/AZT [Concomitant]
     Indication: ANTIRETROVIRAL THERAPY
     Dates: start: 20091102
  3. DIFLUCAN [Concomitant]
     Indication: ORAL FUNGAL INFECTION
     Route: 048
     Dates: start: 20091028, end: 20091108
  4. IPAROSIN [Concomitant]
     Indication: ANTIBIOTIC PROPHYLAXIS
     Route: 042
     Dates: start: 20100318, end: 20100318
  5. KUNWHA SOMALGEN [Concomitant]
     Indication: ANTACID THERAPY
     Route: 048
     Dates: start: 20100319, end: 20100325
  6. VARIDASE [Concomitant]
     Indication: DYSPEPSIA
     Dates: start: 20100319, end: 20100325
  7. DENOGAN [Concomitant]
     Indication: ANALGESIC THERAPY
     Dosage: 1G/5ML VIAL
     Route: 042
     Dates: start: 20100319, end: 20100319
  8. MIYARISAN-VITA [Concomitant]
     Indication: GASTROINTESTINAL DISORDER
     Route: 048
     Dates: start: 20100319, end: 20100325
  9. GREENCROSS INFLUENZA HA VACCINE [Concomitant]
     Indication: INFLUENZA IMMUNISATION
     Dosage: 1ML VIAL
     Route: 030
     Dates: start: 20100201, end: 20100201
  10. ATACAND [Concomitant]
     Indication: PROTEINURIA
     Route: 048
     Dates: start: 20100619

REACTIONS (5)
  - CATARACT OPERATION [None]
  - DYSPEPSIA [None]
  - PNEUMONIA [None]
  - PROTEINURIA [None]
  - RASH [None]
